FAERS Safety Report 6594269-5 (Version None)
Quarter: 2010Q1

REPORT INFORMATION
  Report Type: 
  Country: None (occurrence: None)
  Receive Date: 20100222
  Receipt Date: 20100211
  Transmission Date: 20100710
  Serious: Yes (Hospitalization)
  Sender: FDA-Public Use
  Company Number: FR-AMGEN-US375163

PATIENT
  Sex: Male
  Weight: 85 kg

DRUGS (5)
  1. ENBREL [Suspect]
     Indication: PSORIASIS
     Dosage: 50 MG 2 TIMES WEEKLY WITH AN ACCIDENTAL OVERDOSE IN SEP-2009: 4 DOSES OF 50 MG (200 MG) OVER 1 WEEK
     Route: 058
     Dates: start: 20090301, end: 20091001
  2. CONTRAMAL [Concomitant]
     Route: 048
  3. ATARAX [Concomitant]
     Route: 048
  4. EQUANIL [Concomitant]
     Route: 048
  5. STILNOX [Concomitant]
     Route: 048

REACTIONS (11)
  - ACCIDENTAL OVERDOSE [None]
  - ALOPECIA SCARRING [None]
  - FOLLICULITIS [None]
  - GENERAL PHYSICAL HEALTH DETERIORATION [None]
  - HYPERTRICHOSIS [None]
  - INAPPROPRIATE SCHEDULE OF DRUG ADMINISTRATION [None]
  - LYMPH NODE PAIN [None]
  - LYMPHADENOPATHY [None]
  - NECK PAIN [None]
  - PURPURA [None]
  - SECRETION DISCHARGE [None]
